FAERS Safety Report 4374344-6 (Version None)
Quarter: 2004Q2

REPORT INFORMATION
  Report Type: 
  Country: None (occurrence: None)
  Receive Date: 20040608
  Receipt Date: 20040608
  Transmission Date: 20050107
  Serious: Yes (Hospitalization)
  Sender: FDA-Public Use
  Company Number: None

PATIENT
  Age: 74 Year
  Sex: Male
  Weight: 78.4723 kg

DRUGS (1)
  1. COUMADIN [Suspect]
     Indication: ANTICOAGULANT THERAPY
     Dosage: 2.5 MG DAILY ORAL
     Route: 048

REACTIONS (8)
  - ARTERIOVENOUS MALFORMATION [None]
  - ASTHENIA [None]
  - FAECES DISCOLOURED [None]
  - FATIGUE [None]
  - HAEMATOCRIT DECREASED [None]
  - HAEMOGLOBIN DECREASED [None]
  - HAEMORRHAGE [None]
  - REFUSAL OF TREATMENT BY PATIENT [None]
